FAERS Safety Report 6369164-7 (Version None)
Quarter: 2009Q3

REPORT INFORMATION
  Report Type: 
  Country: None (occurrence: None)
  Receive Date: 20090922
  Receipt Date: 20090914
  Transmission Date: 20100115
  Serious: Yes (Hospitalization)
  Sender: FDA-Public Use
  Company Number: IE-ABBOTT-09P-229-0597251-00

PATIENT
  Sex: Male

DRUGS (3)
  1. HUMIRA [Suspect]
     Indication: CROHN'S DISEASE
     Route: 058
     Dates: start: 20090701
  2. DELTACORTRIL [Concomitant]
     Indication: DRUG USE FOR UNKNOWN INDICATION
     Dosage: REUCED BY 5 MG EACH MONTH UNTIL 18-MAY-09, THEN BY 10MG, THEN REDUCED BY 1MG 1 MONTH
     Dates: start: 20090201
  3. DELTACORTRIL [Concomitant]
     Dosage: STARTING DOSE

REACTIONS (2)
  - DEPRESSION [None]
  - PSYCHOTIC DISORDER [None]
